FAERS Safety Report 5427078-0 (Version None)
Quarter: 2007Q3

REPORT INFORMATION
  Report Type: 
  Country: None (occurrence: None)
  Receive Date: 20070824
  Receipt Date: 20070824
  Transmission Date: 20080115
  Serious: Yes (Life-Threatening)
  Sender: FDA-Public Use
  Company Number: None

PATIENT
  Age: 61 Year
  Sex: Male
  Weight: 75 kg

DRUGS (11)
  1. REGULAR INSULIN [Suspect]
     Indication: TYPE 1 DIABETES MELLITUS
     Dosage: 18 UNIT + 9 UNITS IN 3 HRS
     Dates: start: 20070326, end: 20070327
  2. SENNA [Concomitant]
  3. DOCUSATE [Concomitant]
  4. LIDOCAINE [Concomitant]
  5. ATORVASTATIN CALCIUM [Concomitant]
  6. FERROUS SULFATE TAB [Concomitant]
  7. HEPARIN [Concomitant]
  8. CEFAZOLIN [Concomitant]
  9. RANITIDINE [Concomitant]
  10. METOPROLOL SUCCINATE [Concomitant]
  11. HYDROCORTISONE [Concomitant]

REACTIONS (2)
  - DYSPNOEA [None]
  - UNRESPONSIVE TO STIMULI [None]
